FAERS Safety Report 4830933-3 (Version None)
Quarter: 2005Q4

REPORT INFORMATION
  Report Type: 
  Country: None (occurrence: None)
  Receive Date: 20051114
  Receipt Date: 20051029
  Transmission Date: 20060501
  Serious: Yes (Hospitalization)
  Sender: FDA-Public Use
  Company Number: 2005150846

PATIENT
  Age: 90 Year
  Sex: Male

DRUGS (6)
  1. XALATAN [Suspect]
     Dosage: UNK INTERVAL:  EVERYDAY), OPHTHALMIC
     Route: 047
     Dates: start: 20000101
  2. TIMOLOL MALEATE [Concomitant]
  3. AMLODIPINE BESILATE (AMLODIPINE) [Concomitant]
  4. WARFARIN SODIUM [Concomitant]
  5. PANTOPRAZOLE SODIUM [Concomitant]
  6. LOSARTAN POTASSIUM [Concomitant]

REACTIONS (1)
  - PNEUMONIA [None]
